FAERS Safety Report 8274753-9 (Version None)
Quarter: 2012Q2

REPORT INFORMATION
  Report Type: 
  Country: None (occurrence: None)
  Receive Date: 20120411
  Receipt Date: 20120402
  Transmission Date: 20120825
  Serious: Yes (Other)
  Sender: FDA-Public Use
  Company Number: US-BRISTOL-MYERS SQUIBB COMPANY-16496465

PATIENT
  Age: 51 Year
  Sex: Female
  Weight: 65 kg

DRUGS (1)
  1. KENALOG [Suspect]
     Dosage: SECOND : 21FEB2012
     Dates: start: 20120127

REACTIONS (8)
  - WEIGHT INCREASED [None]
  - SWELLING FACE [None]
  - VERTIGO [None]
  - RETINAL DETACHMENT [None]
  - HEART RATE INCREASED [None]
  - HEADACHE [None]
  - BLOOD PRESSURE INCREASED [None]
  - MUSCULAR WEAKNESS [None]
